FAERS Safety Report 9553702 (Version 1)
Quarter: 2013Q3

REPORT INFORMATION
  Report Type: Spontaneous
  Country: US (occurrence: None)
  Receive Date: 20130815
  Receipt Date: 20130815
  Transmission Date: 20140515
  Serious: Yes (Hospitalization, Other)
  Sender: FDA-Public Use
  Company Number: ADR-2013-01013

PATIENT
  Age: 43 Year
  Sex: Female

DRUGS (3)
  1. LIORESAL INTRATHECAL (BACLOFEN INJECTION) [Suspect]
     Indication: MUSCLE SPASTICITY
     Dosage: 700 MCG/DAY
  2. MORPHINE INTRATHECAL 10MG/ML [Suspect]
     Indication: MUSCLE SPASTICITY
  3. ORAL BACLOFEN [Concomitant]

REACTIONS (3)
  - Overdose [None]
  - Respiratory arrest [None]
  - Convulsion [None]
